FAERS Safety Report 6228707-4 (Version None)
Quarter: 2009Q2

REPORT INFORMATION
  Report Type: 
  Country: None (occurrence: None)
  Receive Date: 20090615
  Receipt Date: 20090608
  Transmission Date: 20091009
  Serious: Yes (Hospitalization)
  Sender: FDA-Public Use
  Company Number: FR-JNJFOC-20090602661

PATIENT
  Age: 85 Year
  Sex: Female

DRUGS (3)
  1. DURAGESIC-100 [Suspect]
     Indication: HERPES ZOSTER
     Route: 062
  2. ACTISKENAN [Suspect]
     Indication: HERPES ZOSTER
     Route: 048
  3. LYRICA [Concomitant]
     Indication: HERPES ZOSTER
     Route: 065

REACTIONS (3)
  - BALANCE DISORDER [None]
  - CONFUSIONAL STATE [None]
  - DISORIENTATION [None]
